FAERS Safety Report 8162428-6 (Version None)
Quarter: 2012Q1

REPORT INFORMATION
  Report Type: 
  Country: None (occurrence: None)
  Receive Date: 20120103
  Receipt Date: 20110926
  Transmission Date: 20120608
  Serious: No
  Sender: FDA-Public Use
  Company Number: AE-2011-001846

PATIENT
  Age: 56 Year
  Sex: Female
  Weight: 133.8111 kg

DRUGS (14)
  1. PEGASYS [Concomitant]
  2. GLIPIZIDE [Concomitant]
  3. VENTOLIN [Concomitant]
  4. PRILOSEC [Concomitant]
  5. LOSARTAN/HCTZ (HYZAAR) [Concomitant]
  6. RIBAVIRIN [Concomitant]
  7. THEOPHYLLINE [Concomitant]
  8. CELEXA [Concomitant]
  9. LORTAB [Concomitant]
  10. ASPIRIN [Concomitant]
  11. ADVAIR 50/500 DISC (SERETIDE MITE) [Concomitant]
  12. CENTRUM (CENTRUM) [Concomitant]
  13. INCIVEK [Suspect]
     Dosage: 2250 MG (750 MG, 1 IN 8 HR), ORAL
     Route: 048
     Dates: start: 20110722
  14. ALBUTEROL [Concomitant]

REACTIONS (5)
  - DIARRHOEA [None]
  - NAUSEA [None]
  - CONSTIPATION [None]
  - ABDOMINAL PAIN UPPER [None]
  - RASH [None]
